FAERS Safety Report 16647100 (Version 2)
Quarter: 2019Q3

REPORT INFORMATION
  Report Type: Report from Study
  Country: IT (occurrence: IT)
  Receive Date: 20190730
  Receipt Date: 20190808
  Transmission Date: 20191004
  Serious: Yes (Hospitalization, Other)
  Sender: FDA-Public Use
  Company Number: IT-PFIZER INC-2019320910

PATIENT
  Age: 20 Year
  Sex: Female

DRUGS (6)
  1. QUETIAPINE. [Concomitant]
     Active Substance: QUETIAPINE
     Indication: DEPRESSION
     Dosage: UNK
  2. EN [Suspect]
     Active Substance: DELORAZEPAM
     Dosage: 20 ML, TOTAL (1 MG/ML, 20 MG TOTAL)
     Route: 048
     Dates: start: 20190502, end: 20190502
  3. TAVOR (LORAZEPAM) [Suspect]
     Active Substance: LORAZEPAM
     Dosage: 10 DF, TOTAL
     Route: 048
     Dates: start: 20190502, end: 20190502
  4. FLUNOX [Suspect]
     Active Substance: FLURAZEPAM HYDROCHLORIDE
     Dosage: 11 DF, TOTAL (30 MG CAPSULE, 330 MG TOTAL)
     Route: 048
     Dates: start: 20190502, end: 20190502
  5. LAMICTAL [Concomitant]
     Active Substance: LAMOTRIGINE
     Indication: DEPRESSION
     Dosage: UNK
  6. PREGABALIN. [Suspect]
     Active Substance: PREGABALIN
     Indication: GENERALISED ANXIETY DISORDER
     Dosage: 300 MG, TOTAL
     Route: 048
     Dates: start: 20190502, end: 20190502

REACTIONS (4)
  - Intentional product misuse [Recovering/Resolving]
  - Sopor [Recovering/Resolving]
  - Vomiting [Recovering/Resolving]
  - Intentional self-injury [Recovering/Resolving]

NARRATIVE: CASE EVENT DATE: 20190502
